FAERS Safety Report 9557430 (Version 1)
Quarter: 2013Q3

REPORT INFORMATION
  Report Type: Spontaneous
  Country: US (occurrence: None)
  Receive Date: 20130726
  Receipt Date: 20130726
  Transmission Date: 20140515
  Serious: Yes (Hospitalization)
  Sender: FDA-Public Use
  Company Number: UTC-019206

PATIENT
  Age: 58 Year
  Sex: Female

DRUGS (4)
  1. TYVASO [Suspect]
     Indication: PULMONARY ARTERIAL HYPERTENSION
     Dosage: 18-54 MCGS (4 IN 1 D), INHALATION
     Route: 055
     Dates: start: 20110811, end: 20120711
  2. REVATIO (SILDENAFIL CITRATE) [Concomitant]
  3. TRACLEER (BOSENTAN) [Concomitant]
  4. ASPIRIN (ACETYLSALICYLIC ACID) [Concomitant]

REACTIONS (4)
  - Syncope [None]
  - Hypotension [None]
  - Dizziness [None]
  - Treatment noncompliance [None]
